FAERS Safety Report 6030439-2 (Version None)
Quarter: 2009Q1

REPORT INFORMATION
  Report Type: 
  Country: None (occurrence: None)
  Receive Date: 20090107
  Receipt Date: 20081229
  Transmission Date: 20090719
  Serious: Yes (Other)
  Sender: FDA-Public Use
  Company Number: US-BAYER-200841757NA

PATIENT
  Sex: Male

DRUGS (1)
  1. TRASYLOL [Suspect]
     Indication: HEART VALVE OPERATION
     Route: 042

REACTIONS (10)
  - ANHEDONIA [None]
  - ANXIETY [None]
  - CARDIAC ARREST [None]
  - DEFORMITY [None]
  - DISABILITY [None]
  - INJURY [None]
  - PAIN [None]
  - RENAL DISORDER [None]
  - RENAL FAILURE [None]
  - UNEVALUABLE EVENT [None]
